FAERS Safety Report 5556319-4 (Version None)
Quarter: 2007Q4

REPORT INFORMATION
  Report Type: 
  Country: None (occurrence: None)
  Receive Date: 20071213
  Receipt Date: 20071003
  Transmission Date: 20080405
  Serious: No
  Sender: FDA-Public Use
  Company Number: US-AMGEN-KDL235483

PATIENT
  Sex: Male

DRUGS (1)
  1. ENBREL [Suspect]
     Indication: PSORIASIS
     Route: 058
     Dates: start: 20070621

REACTIONS (5)
  - DYSPEPSIA [None]
  - HEADACHE [None]
  - LETHARGY [None]
  - MUSCLE SPASMS [None]
  - MYALGIA [None]
